FAERS Safety Report 8590122-6 (Version None)
Quarter: 2012Q3

REPORT INFORMATION
  Report Type: 
  Country: None (occurrence: None)
  Receive Date: 20120813
  Receipt Date: 20120806
  Transmission Date: 20120928
  Serious: Yes (Hospitalization)
  Sender: FDA-Public Use
  Company Number: JP-AMGEN-JPNCT2012050161

PATIENT
  Age: 44 Year
  Sex: Female
  Weight: 85 kg

DRUGS (11)
  1. PEGFILGRASTIM [Suspect]
     Indication: CHEMOTHERAPY
     Dosage: 3.6 MG, QD
     Route: 058
     Dates: start: 20120214
  2. AZUNOL [Concomitant]
     Indication: INFECTION PROPHYLAXIS
     Dosage: PROPER QUANTITY
     Route: 049
     Dates: start: 20120305
  3. PURSENNID [Concomitant]
     Dosage: UNCERTAIN DOSAGE AND SINGLE USE
     Route: 048
     Dates: start: 20120214
  4. MAGLAX [Concomitant]
     Route: 048
     Dates: start: 20120305
  5. TAXOTERE [Concomitant]
     Indication: BREAST CANCER
     Dosage: 130 MG, QD
     Route: 042
     Dates: start: 20120213
  6. HIRUDOID [Concomitant]
     Indication: SKIN EXFOLIATION
     Dosage: PROPER QUANTITY
     Route: 061
     Dates: start: 20120305
  7. DECADRON PHOSPHATE [Concomitant]
     Indication: PROPHYLAXIS OF NAUSEA AND VOMITING
     Dosage: 1V
     Dates: start: 20120213, end: 20120307
  8. ZANTAC [Concomitant]
     Indication: PROPHYLAXIS OF NAUSEA AND VOMITING
     Dosage: 1A
     Route: 042
     Dates: start: 20120213, end: 20120305
  9. POVIDONE IODINE [Concomitant]
     Indication: INFECTION PROPHYLAXIS
     Dosage: DOSAGE IS UNCERTAIN.
     Route: 049
     Dates: start: 20120220
  10. CYCLOPHOSPHAMIDE [Concomitant]
     Indication: BREAST CANCER
     Dosage: 1100 MG, QD
     Route: 042
     Dates: start: 20120213
  11. ALOXI [Concomitant]
     Indication: PROPHYLAXIS OF NAUSEA AND VOMITING
     Dosage: 1A
     Route: 042
     Dates: start: 20120213, end: 20120305

REACTIONS (1)
  - MALAISE [None]
